FAERS Safety Report 5335101-7 (Version None)
Quarter: 2007Q2

REPORT INFORMATION
  Report Type: 
  Country: None (occurrence: None)
  Receive Date: 20070525
  Receipt Date: 20070515
  Transmission Date: 20071010
  Serious: Yes (Hospitalization, Other)
  Sender: FDA-Public Use
  Company Number: US-ABBOTT-06P-163-0351905-00

PATIENT
  Sex: Female
  Weight: 107 kg

DRUGS (6)
  1. HUMIRA [Suspect]
     Indication: RHEUMATOID ARTHRITIS
     Route: 058
     Dates: start: 20050901, end: 20061113
  2. LEFLUNOMIDE [Concomitant]
     Indication: DRUG USE FOR UNKNOWN INDICATION
  3. METFORMIN HCL [Concomitant]
     Indication: DRUG USE FOR UNKNOWN INDICATION
  4. ATORVASTATIN [Concomitant]
     Indication: DRUG USE FOR UNKNOWN INDICATION
  5. LEVOTHYROXINE SODIUM [Concomitant]
     Indication: DRUG USE FOR UNKNOWN INDICATION
  6. STEROIDS [Concomitant]
     Indication: DRUG USE FOR UNKNOWN INDICATION

REACTIONS (13)
  - AGNOSIA [None]
  - BLOOD GLUCOSE INCREASED [None]
  - DIZZINESS [None]
  - EMBOLIC STROKE [None]
  - HEMIANOPIA HOMONYMOUS [None]
  - HYPOAESTHESIA ORAL [None]
  - IMPAIRED WORK ABILITY [None]
  - MOOD ALTERED [None]
  - OEDEMA [None]
  - RHEUMATOID FACTOR INCREASED [None]
  - SUBARACHNOID HAEMORRHAGE [None]
  - VASCULITIS CEREBRAL [None]
  - VIBRATION TEST ABNORMAL [None]
